FAERS Safety Report 6341198-8 (Version None)
Quarter: 2009Q3

REPORT INFORMATION
  Report Type: 
  Country: None (occurrence: None)
  Receive Date: 20090904
  Receipt Date: 20090420
  Transmission Date: 20100115
  Serious: No
  Sender: FDA-Public Use
  Company Number: A0779683A

PATIENT
  Age: 61 Year
  Sex: Female

DRUGS (2)
  1. REQUIP [Suspect]
     Indication: RESTLESS LEGS SYNDROME
     Dosage: 2MG PER DAY
     Route: 048
     Dates: start: 20080401
  2. LIPITOR [Concomitant]

REACTIONS (6)
  - ABDOMINAL DISCOMFORT [None]
  - DRUG INEFFECTIVE [None]
  - FLUID RETENTION [None]
  - INCREASED APPETITE [None]
  - NAUSEA [None]
  - WEIGHT INCREASED [None]
